FAERS Safety Report 16638733 (Version 3)
Quarter: 2019Q3

REPORT INFORMATION
  Report Type: Spontaneous
  Country: CN (occurrence: CN)
  Receive Date: 20190726
  Receipt Date: 20190806
  Transmission Date: 20191004
  Serious: Yes (Death)
  Sender: FDA-Public Use
  Company Number: CN-ASTRAZENECA-2019SF06375

PATIENT
  Age: 716 Month
  Sex: Female

DRUGS (2)
  1. LYNPARZA [Suspect]
     Active Substance: OLAPARIB
     Indication: OVARIAN EPITHELIAL CANCER
     Route: 048
     Dates: start: 2018
  2. ABRAXANE [Concomitant]
     Active Substance: PACLITAXEL
     Indication: ILL-DEFINED DISORDER
     Route: 065
     Dates: start: 2019, end: 201904

REACTIONS (6)
  - Ileus [Fatal]
  - Intestinal metastasis [Fatal]
  - Metastases to abdominal cavity [Fatal]
  - Renal disorder [Unknown]
  - Hypophagia [Fatal]
  - Dyspepsia [Fatal]

NARRATIVE: CASE EVENT DATE: 201811
